FAERS Safety Report 4967125-3 (Version None)
Quarter: 2006Q2

REPORT INFORMATION
  Report Type: 
  Country: None (occurrence: None)
  Receive Date: 20060404
  Receipt Date: 20060317
  Transmission Date: 20061013
  Serious: Yes (Life-Threatening, Hospitalization)
  Sender: FDA-Public Use
  Company Number: 223597

PATIENT
  Age: 64 Year
  Sex: Female

DRUGS (8)
  1. BEVACIZUMAB(BEVACIZUMAB) PWDR + SOLVENT,INFUSION SOLN, 100MG [Suspect]
     Indication: NON-SMALL CELL LUNG CANCER
     Dates: start: 20030520
  2. PACILTAXEL (PACILTAXEL) [Suspect]
     Indication: NON-SMALL CELL LUNG CANCER
     Dates: start: 20030520
  3. ACETAMINOPHEN [Concomitant]
  4. LABETALOL (LABETALOL HYDROCHLORIDE) [Concomitant]
  5. ROCEPHIN [Concomitant]
  6. TOPROL (METOPROLOD SUCCINATE) [Concomitant]
  7. LISINOPRIL [Concomitant]
  8. AMPICILLIN [Concomitant]

REACTIONS (13)
  - ANAEMIA [None]
  - ARTERIOSCLEROSIS [None]
  - BLOOD PRESSURE INCREASED [None]
  - CONFUSIONAL STATE [None]
  - CONVULSION [None]
  - HYPERTENSION [None]
  - HYPERTENSIVE ENCEPHALOPATHY [None]
  - HYPOKALAEMIA [None]
  - MALIGNANT NEOPLASM PROGRESSION [None]
  - METASTASES TO CENTRAL NERVOUS SYSTEM [None]
  - SINUS TACHYCARDIA [None]
  - THROMBOCYTOPENIA [None]
  - URINARY TRACT INFECTION [None]
